FAERS Safety Report 9848413 (Version 1)
Quarter: 2014Q1

REPORT INFORMATION
  Report Type: Spontaneous
  Country: US (occurrence: None)
  Receive Date: 20140127
  Receipt Date: 20140127
  Transmission Date: 20141002
  Serious: No
  Sender: FDA-Public Use
  Company Number: None

PATIENT
  Age: 63 Year
  Sex: Female
  Weight: 55.34 kg

DRUGS (1)
  1. ASPIRIN [Suspect]
     Indication: NASOPHARYNGITIS
     Dosage: 2 PILLS AS NEEDED TAKEN BY MOUTH
     Route: 048
     Dates: start: 20140125, end: 20140125

REACTIONS (1)
  - Headache [None]
